FAERS Safety Report 23123329 (Version 2)
Quarter: 2023Q4

REPORT INFORMATION
  Report Type: Spontaneous
  Country: IN (occurrence: IN)
  Receive Date: 20231030
  Receipt Date: 20231106
  Transmission Date: 20240110
  Serious: Yes (Other)
  Sender: FDA-Public Use
  Company Number: IN-Accord-386834

PATIENT
  Age: 3 Decade
  Sex: Female

DRUGS (3)
  1. ITRACONAZOLE [Interacting]
     Active Substance: ITRACONAZOLE
     Indication: Bronchopulmonary aspergillosis allergic
     Route: 048
  2. BUDESONIDE [Interacting]
     Active Substance: BUDESONIDE
     Indication: Asthma
  3. FORMOTEROL [Concomitant]
     Active Substance: FORMOTEROL
     Indication: Asthma
     Dosage: TWO DIVIDED DOSES
     Route: 055

REACTIONS (3)
  - Cushing^s syndrome [Recovered/Resolved]
  - Drug interaction [Unknown]
  - Adrenal insufficiency [Recovered/Resolved]
